FAERS Safety Report 20872648 (Version 1)
Quarter: 2022Q2

REPORT INFORMATION
  Report Type: Spontaneous
  Country: US (occurrence: None)
  Receive Date: 20220525
  Receipt Date: 20220525
  Transmission Date: 20220721
  Serious: No
  Sender: FDA-Public Use
  Company Number: None

PATIENT
  Age: 67 Year
  Sex: Female
  Weight: 66.15 kg

DRUGS (4)
  1. HAWAIIAN TROPIC LIP BALM SUNSCREEN SPF 30 [Suspect]
     Active Substance: AVOBENZONE\OCTISALATE\OCTOCRYLENE
     Indication: Sunburn
     Dosage: OTHER QUANTITY : 1 TOPICAL;?
     Route: 061
  2. HAWAIIAN TROPIC LIP BALM SUNSCREEN SPF 30 [Suspect]
     Active Substance: AVOBENZONE\OCTISALATE\OCTOCRYLENE
     Indication: Prophylaxis
  3. TOPROL XL [Concomitant]
     Active Substance: METOPROLOL SUCCINATE
  4. VITAMINS [Concomitant]
     Active Substance: VITAMINS

REACTIONS (5)
  - Lip swelling [None]
  - Lip pain [None]
  - Application site burn [None]
  - Oral discomfort [None]
  - Lip erythema [None]

NARRATIVE: CASE EVENT DATE: 20220423
